FAERS Safety Report 23092904 (Version 1)
Quarter: 2023Q4

REPORT INFORMATION
  Report Type: Spontaneous
  Country: US (occurrence: US)
  Receive Date: 20231021
  Receipt Date: 20231021
  Transmission Date: 20240110
  Serious: Yes (Life-Threatening, Hospitalization, Other)
  Sender: FDA-Public Use
  Company Number: US-MLMSERVICE-20231004-4581418-1

PATIENT
  Age: 32 Year
  Sex: Male

DRUGS (2)
  1. FLUOROURACIL [Suspect]
     Active Substance: FLUOROURACIL
     Indication: Colon cancer stage III
     Dosage: CONTINUOUS INFUSION
  2. ENOXAPARIN [Concomitant]
     Active Substance: ENOXAPARIN

REACTIONS (4)
  - Acute coronary syndrome [Recovering/Resolving]
  - Brain injury [Recovering/Resolving]
  - Cardiac arrest [Recovering/Resolving]
  - Arteriospasm coronary [Recovering/Resolving]
